FAERS Safety Report 7038710-2 (Version None)
Quarter: 2010Q4

REPORT INFORMATION
  Report Type: 
  Country: None (occurrence: None)
  Receive Date: 20101012
  Receipt Date: 20101001
  Transmission Date: 20110411
  Serious: Yes (Life-Threatening)
  Sender: FDA-Public Use
  Company Number: FR-BIOGENIDEC-2009BI039288

PATIENT
  Age: 41 Year
  Sex: Male
  Weight: 100 kg

DRUGS (6)
  1. TYSABRI [Suspect]
     Indication: MULTIPLE SCLEROSIS
     Route: 042
     Dates: start: 20070801, end: 20100909
  2. VITAMIN K TAB [Concomitant]
     Indication: VITAMIN SUPPLEMENTATION
     Route: 048
     Dates: start: 20100105
  3. PRIMPERAN [Concomitant]
     Indication: ANTIEMETIC SUPPORTIVE CARE
     Route: 048
     Dates: start: 20100105
  4. TRANSIPEG [Concomitant]
     Indication: CONSTIPATION
     Route: 048
     Dates: start: 20100105
  5. MORPHIN [Concomitant]
     Indication: PAIN
     Route: 042
     Dates: start: 20100105
  6. ACUPAN [Concomitant]
     Indication: PAIN
     Route: 048
     Dates: start: 20100105

REACTIONS (3)
  - HEPATIC NEOPLASM [None]
  - MULTIPLE SCLEROSIS RELAPSE [None]
  - SMALL CELL LUNG CANCER STAGE UNSPECIFIED [None]
